FAERS Safety Report 5342651-6 (Version None)
Quarter: 2007Q2

REPORT INFORMATION
  Report Type: 
  Country: None (occurrence: None)
  Receive Date: 20070601
  Receipt Date: 20070525
  Transmission Date: 20071010
  Serious: Yes (Other)
  Sender: FDA-Public Use
  Company Number: SE-PFIZER INC-2007038250

PATIENT
  Age: 15 Year
  Sex: Female
  Weight: 50 kg

DRUGS (3)
  1. SOLU-CORTEF [Suspect]
     Indication: LEUKOENCEPHALOMYELITIS
  2. SOLU-MEDROL [Suspect]
     Indication: LEUKOENCEPHALOMYELITIS
     Route: 042
  3. TAVEGYL [Concomitant]
     Route: 042

REACTIONS (5)
  - FLUSHING [None]
  - HYPERSENSITIVITY [None]
  - INTENTIONAL DRUG MISUSE [None]
  - PHARYNGEAL OEDEMA [None]
  - URTICARIA [None]
